FAERS Safety Report 6376589-2 (Version None)
Quarter: 2009Q3

REPORT INFORMATION
  Report Type: 
  Country: None (occurrence: None)
  Receive Date: 20090925
  Receipt Date: 20090918
  Transmission Date: 20100115
  Serious: Yes (Hospitalization, Other)
  Sender: FDA-Public Use
  Company Number: US-ASTRAZENECA-2007UW18682

PATIENT
  Age: 39 Year
  Sex: Female
  Weight: 80.7 kg

DRUGS (10)
  1. SEROQUEL [Suspect]
     Indication: BIPOLAR DISORDER
     Dosage: 100MG-300MG
     Route: 048
     Dates: start: 19990101, end: 20040101
  2. SEROQUEL [Suspect]
     Route: 048
     Dates: start: 20020810
  3. REMERON [Concomitant]
  4. RISPERDAL [Concomitant]
  5. TOPAMAX [Concomitant]
  6. DIPHENHYDRAMINE HCL [Concomitant]
  7. LEXAPRO [Concomitant]
  8. TRAZODONE HCL [Concomitant]
  9. ABILIFY [Concomitant]
  10. ZOLOFT [Concomitant]

REACTIONS (13)
  - ANHEDONIA [None]
  - ASTHENIA [None]
  - DECREASED APPETITE [None]
  - DEPRESSION [None]
  - DIABETES MELLITUS [None]
  - ILL-DEFINED DISORDER [None]
  - INSOMNIA [None]
  - IRRITABILITY [None]
  - PANCREATITIS [None]
  - PARANOIA [None]
  - PSYCHIATRIC SYMPTOM [None]
  - SUICIDAL IDEATION [None]
  - WEIGHT DECREASED [None]
